FAERS Safety Report 11768023 (Version 1)
Quarter: 2015Q4

REPORT INFORMATION
  Report Type: Spontaneous
  Country: US (occurrence: US)
  Receive Date: 20151123
  Receipt Date: 20151123
  Transmission Date: 20160304
  Serious: No
  Sender: FDA-Public Use
  Company Number: US-JNJFOC-20151001523

PATIENT
  Age: 86 Year
  Sex: Female
  Weight: 69.85 kg

DRUGS (2)
  1. ZYRTEC 10MG IR TABLET [Suspect]
     Active Substance: CETIRIZINE HYDROCHLORIDE
     Indication: SWELLING
     Dosage: EVERY OTHER DAY
     Route: 048
  2. ZYRTEC 10MG IR TABLET [Suspect]
     Active Substance: CETIRIZINE HYDROCHLORIDE
     Indication: MULTIPLE ALLERGIES
     Dosage: EVERY OTHER DAY
     Route: 048

REACTIONS (5)
  - Product label issue [Unknown]
  - Wrong patient received medication [Unknown]
  - Product use issue [Unknown]
  - Product closure removal difficult [Unknown]
  - Product quality issue [Unknown]
